FAERS Safety Report 7285496-2 (Version None)
Quarter: 2011Q1

REPORT INFORMATION
  Report Type: 
  Country: None (occurrence: None)
  Receive Date: 20110121
  Receipt Date: 20070313
  Transmission Date: 20110831
  Serious: No
  Sender: FDA-Public Use
  Company Number: 107

PATIENT
  Sex: Male
  Weight: 121.564 kg

DRUGS (5)
  1. FAZACLO ODT [Suspect]
     Indication: SCHIZOPHRENIA
     Dosage: 400 MG PO DAILY
     Route: 048
     Dates: start: 20070116
  2. ABILIFY [Concomitant]
  3. LEXAPRO [Concomitant]
  4. ANAFRANIL [Concomitant]
  5. SEROQUEL [Concomitant]

REACTIONS (1)
  - HYPERGLYCAEMIA [None]
